FAERS Safety Report 24299279 (Version 1)
Quarter: 2024Q3

REPORT INFORMATION
  Report Type: Spontaneous
  Country: US (occurrence: None)
  Receive Date: 20240908
  Receipt Date: 20240908
  Transmission Date: 20241017
  Serious: Yes (Disabling)
  Sender: Public
  Company Number: None

PATIENT
  Age: 70 Year
  Sex: Female
  Weight: 76.5 kg

DRUGS (11)
  1. UBRELVY [Suspect]
     Active Substance: UBROGEPANT
     Indication: Migraine
     Dosage: 1 TABLET ORAL
     Route: 048
     Dates: start: 20240907, end: 20240907
  2. OMEPRAZOLE [Concomitant]
     Active Substance: OMEPRAZOLE
  3. FLUTICASONE [Concomitant]
     Active Substance: FLUTICASONE
  4. astalizine [Concomitant]
  5. ASPIRIN [Concomitant]
     Active Substance: ASPIRIN
  6. TYLENOL EXTRA STRENGTH [Concomitant]
     Active Substance: ACETAMINOPHEN
  7. VITAMIN B COMPLEX [Concomitant]
     Active Substance: CYANOCOBALAMIN\DEXPANTHENOL\NIACINAMIDE\PYRIDOXINE HYDROCHLORIDE\RIBOFLAVIN 5^-PHOSPHATE SODIUM\THIA
  8. MAGNESIUM [Concomitant]
     Active Substance: MAGNESIUM
  9. VITAMIN D3 [Concomitant]
     Active Substance: CHOLECALCIFEROL
  10. POLYETHYLENE GLYCOL [Concomitant]
     Active Substance: POLYETHYLENE GLYCOL
  11. SODIUM CHLORIDE [Concomitant]
     Active Substance: SODIUM CHLORIDE

REACTIONS (6)
  - Lethargy [None]
  - Decreased appetite [None]
  - Hypoaesthesia [None]
  - Nausea [None]
  - Insomnia [None]
  - Pruritus [None]

NARRATIVE: CASE EVENT DATE: 20240907
